FAERS Safety Report 8282326 (Version 8)
Quarter: 2012Q4

REPORT INFORMATION
  Report Type: 
  Country: US (occurrence: US)
  Receive Date: 20111209
  Receipt Date: 20121016
  Transmission Date: 20130627
  Serious: Yes (Hospitalization, Disabling, Other)
  Sender: FDA-Public Use
  Company Number: US-009507513-1112USA00798

PATIENT

DRUGS (9)
  1. FOSAMAX [Suspect]
     Indication: OSTEOPOROSIS
     Dosage: 10 mg, qd
     Route: 048
     Dates: start: 1998, end: 200104
  2. FOSAMAX [Suspect]
     Indication: OSTEOPENIA
     Dosage: 70 mg, QW
     Route: 048
     Dates: start: 20010508, end: 200807
  3. FOSAMAX [Suspect]
     Indication: OSTEOPOROSIS
     Route: 048
     Dates: start: 200802, end: 2008
  4. FOSAMAX [Suspect]
     Indication: OSTEOPOROSIS PROPHYLAXIS
  5. ALENDRONATE SODIUM [Suspect]
     Indication: OSTEOPOROSIS
     Route: 048
     Dates: start: 200802, end: 2008
  6. ALENDRONATE SODIUM [Suspect]
     Indication: OSTEOPOROSIS PROPHYLAXIS
  7. ESOMEPRAZOLE [Concomitant]
     Dates: start: 2007, end: 2009
  8. RECLAST [Suspect]
     Indication: OSTEOPOROSIS
     Dosage: 5/100 ml
     Route: 041
  9. PREDNISONE [Suspect]
     Indication: DERMATOMYOSITIS
     Dosage: UNK
     Dates: start: 200212, end: 200802

REACTIONS (48)
  - Soft tissue injury [Unknown]
  - Uterine dilation and curettage [Unknown]
  - Postmenopausal haemorrhage [Unknown]
  - Urinary tract infection [Unknown]
  - Pruritus [Unknown]
  - Headache [Unknown]
  - Vertigo [Unknown]
  - Back pain [Not Recovered/Not Resolved]
  - Arthralgia [Unknown]
  - Gastrooesophageal reflux disease [Unknown]
  - Haemorrhagic anaemia [Unknown]
  - Osteonecrosis [Unknown]
  - Low turnover osteopathy [Not Recovered/Not Resolved]
  - Systemic lupus erythematosus [Unknown]
  - Deafness neurosensory [Unknown]
  - Arthropathy [Recovered/Resolved]
  - Femur fracture [Recovered/Resolved]
  - Dermatomyositis [Not Recovered/Not Resolved]
  - Fall [Unknown]
  - Adverse drug reaction [Unknown]
  - Essential hypertension [Unknown]
  - Anaemia [Unknown]
  - Arrhythmia [Unknown]
  - Palpitations [Unknown]
  - Bursitis [Unknown]
  - Liver function test abnormal [Unknown]
  - Carotid artery stenosis [Unknown]
  - Flushing [Recovering/Resolving]
  - Arthritis [Unknown]
  - Cardiac disorder [Unknown]
  - Gastric disorder [Unknown]
  - Tachycardia [Not Recovered/Not Resolved]
  - Herpes zoster [Unknown]
  - Ear disorder [Unknown]
  - Cellulitis [Unknown]
  - Nail infection [Unknown]
  - Joint effusion [Unknown]
  - Exostosis [Unknown]
  - Hyperkeratosis [Unknown]
  - Foot deformity [Unknown]
  - Foot deformity [Unknown]
  - Dysphonia [Unknown]
  - Cerumen impaction [Unknown]
  - Tinnitus [Unknown]
  - Tympanic membrane perforation [Unknown]
  - Contusion [Unknown]
  - Benign neoplasm of skin [Unknown]
  - Osteoarthritis [Unknown]
